FAERS Safety Report 6441278-2 (Version None)
Quarter: 2009Q4

REPORT INFORMATION
  Report Type: 
  Country: None (occurrence: None)
  Receive Date: 20091113
  Receipt Date: 20091113
  Transmission Date: 20100525
  Serious: Yes (Other)
  Sender: FDA-Public Use
  Company Number: None

PATIENT
  Age: 38 Year
  Sex: Female
  Weight: 72.5755 kg

DRUGS (3)
  1. MIRENA [Suspect]
     Indication: ENDOMETRIOSIS
     Dosage: IUD, INTRA-UTERINE
     Route: 015
     Dates: start: 20090101
  2. MIRENA [Suspect]
     Indication: MENORRHAGIA
     Dosage: IUD, INTRA-UTERINE
     Route: 015
     Dates: start: 20090101
  3. MIRENA [Suspect]
     Indication: PREMENSTRUAL SYNDROME
     Dosage: IUD, INTRA-UTERINE
     Route: 015
     Dates: start: 20090101

REACTIONS (5)
  - ABDOMINAL PAIN [None]
  - LOSS OF LIBIDO [None]
  - MENORRHAGIA [None]
  - MUSCLE SPASMS [None]
  - WEIGHT INCREASED [None]
